FAERS Safety Report 5325081-2 (Version None)
Quarter: 2007Q2

REPORT INFORMATION
  Report Type: 
  Country: None (occurrence: None)
  Receive Date: 20070511
  Receipt Date: 20070511
  Transmission Date: 20071010
  Serious: Yes (Disabling)
  Sender: FDA-Public Use
  Company Number: None

PATIENT
  Age: 43 Year
  Sex: Female
  Weight: 65.7716 kg

DRUGS (3)
  1. RANEXA [Suspect]
     Indication: ANGINA PECTORIS
     Dosage: 500 MG TWICE DAILY PO
     Route: 048
     Dates: start: 20070215, end: 20070424
  2. COZAAR [Concomitant]
  3. ISOSORB MONO [Concomitant]

REACTIONS (9)
  - BACK PAIN [None]
  - BLOOD PRESSURE FLUCTUATION [None]
  - CHROMATURIA [None]
  - HAEMATURIA [None]
  - HEART RATE INCREASED [None]
  - HYPERHIDROSIS [None]
  - OCULAR ICTERUS [None]
  - PAIN IN JAW [None]
  - RENAL PAIN [None]
